FAERS Safety Report 9614283 (Version 13)
Quarter: 2014Q2

REPORT INFORMATION
  Report Type: Report from Study
  Country: CA (occurrence: CA)
  Receive Date: 20131011
  Receipt Date: 20140612
  Transmission Date: 20141212
  Serious: Yes (Death, Other)
  Sender: FDA-Public Use
  Company Number: CA-ROCHE-1285918

PATIENT
  Age: 72 Year
  Sex: Female
  Weight: 76.2 kg

DRUGS (13)
  1. RITUXAN [Suspect]
     Indication: CHRONIC LYMPHOCYTIC LEUKAEMIA
     Route: 042
     Dates: start: 20110805, end: 20120707
  2. RITUXAN [Suspect]
     Route: 042
     Dates: start: 20131016, end: 20140327
  3. RITUXAN [Suspect]
     Route: 042
     Dates: start: 20110913
  4. RITUXAN [Suspect]
     Route: 042
     Dates: start: 20111011
  5. RITUXAN [Suspect]
     Route: 042
     Dates: start: 20111206
  6. RITUXAN [Suspect]
     Route: 042
     Dates: start: 20120412
  7. RITUXAN [Suspect]
     Route: 042
     Dates: start: 20120510
  8. RITUXAN [Suspect]
     Route: 042
     Dates: start: 20120607
  9. METFORMIN [Suspect]
     Indication: PRODUCT USED FOR UNKNOWN INDICATION
     Route: 065
  10. BENDAMUSTINE [Suspect]
     Indication: CHRONIC LYMPHOCYTIC LEUKAEMIA
     Route: 042
  11. TEVA-RABEPRAZOLE [Concomitant]
  12. RAMIPRIL [Concomitant]
  13. APO-AMILZIDE [Concomitant]

REACTIONS (19)
  - Malignant neoplasm progression [Fatal]
  - Diabetes mellitus inadequate control [Unknown]
  - Mean cell haemoglobin increased [Not Recovered/Not Resolved]
  - Blood test abnormal [Not Recovered/Not Resolved]
  - Blood disorder [Not Recovered/Not Resolved]
  - White blood cell count decreased [Not Recovered/Not Resolved]
  - Red blood cell count decreased [Not Recovered/Not Resolved]
  - Haematocrit decreased [Not Recovered/Not Resolved]
  - Haemoglobin decreased [Not Recovered/Not Resolved]
  - Thrombocytopenia [Not Recovered/Not Resolved]
  - Neutropenia [Not Recovered/Not Resolved]
  - Asthenia [Not Recovered/Not Resolved]
  - Vein disorder [Not Recovered/Not Resolved]
  - Weight decreased [Not Recovered/Not Resolved]
  - Diarrhoea [Unknown]
  - Urinary tract infection [Not Recovered/Not Resolved]
  - Diarrhoea [Not Recovered/Not Resolved]
  - Lymphadenopathy [Recovering/Resolving]
  - Fatigue [Not Recovered/Not Resolved]
